FAERS Safety Report 24608167 (Version 2)
Quarter: 2025Q1

REPORT INFORMATION
  Report Type: Spontaneous
  Country: JP (occurrence: JP)
  Receive Date: 20241112
  Receipt Date: 20250213
  Transmission Date: 20250409
  Serious: Yes (Death, Other)
  Sender: PFIZER
  Company Number: JP-PFIZER INC-202400296233

PATIENT
  Sex: Male

DRUGS (1)
  1. VORICONAZOLE [Suspect]
     Active Substance: VORICONAZOLE
     Dosage: UNK, 2X/DAY (TWICE PER DAY BETWEEN MEALS)

REACTIONS (5)
  - Drug ineffective [Fatal]
  - Pathogen resistance [Fatal]
  - Sepsis [Fatal]
  - Hepatic function abnormal [Unknown]
  - Renal impairment [Unknown]

NARRATIVE: CASE EVENT DATE: 20240912
